FAERS Safety Report 13665544 (Version 2)
Quarter: 2017Q3

REPORT INFORMATION
  Report Type: Spontaneous
  Country: FR (occurrence: FR)
  Receive Date: 20170619
  Receipt Date: 20170914
  Transmission Date: 20171127
  Serious: Yes (Other)
  Sender: FDA-Public Use
  Company Number: FR-BAYER-2017-113679

PATIENT
  Age: 40 Year
  Sex: Female

DRUGS (1)
  1. MIRENA [Suspect]
     Active Substance: LEVONORGESTREL
     Indication: CONTRACEPTION
     Dosage: 20 MCG/24HR, CONT
     Route: 015
     Dates: start: 200806

REACTIONS (9)
  - Fatigue [Recovered/Resolved]
  - Back pain [Recovered/Resolved]
  - Amnestic disorder [Recovered/Resolved]
  - Depression [Recovered/Resolved]
  - Myalgia [Not Recovered/Not Resolved]
  - Loss of libido [Recovered/Resolved]
  - Hair growth abnormal [Recovered/Resolved]
  - Vertigo [Recovered/Resolved]
  - Dry eye [Recovered/Resolved]

NARRATIVE: CASE EVENT DATE: 200812
